FAERS Safety Report 7409716-6 (Version None)
Quarter: 2011Q2

REPORT INFORMATION
  Report Type: 
  Country: None (occurrence: None)
  Receive Date: 20110407
  Receipt Date: 20110407
  Transmission Date: 20111010
  Serious: No
  Sender: FDA-Public Use
  Company Number: None

PATIENT
  Age: 68 Year
  Sex: Female
  Weight: 45.3597 kg

DRUGS (2)
  1. RECLAST [Suspect]
     Indication: OSTEOPOROSIS
     Dosage: STANDARD ONCE ANNUALLY IV
     Route: 042
     Dates: start: 20090810, end: 20100812
  2. RECLAST [Suspect]
     Indication: OSTEOPOROSIS
     Dosage: STANDARD ONCE ANNUALLY IV
     Route: 042
     Dates: start: 20100812, end: 20110405

REACTIONS (3)
  - MYALGIA [None]
  - ASTHENIA [None]
  - JAW DISORDER [None]
